FAERS Safety Report 7701135-8 (Version None)
Quarter: 2011Q3

REPORT INFORMATION
  Report Type: 
  Country: None (occurrence: None)
  Receive Date: 20110822
  Receipt Date: 20110811
  Transmission Date: 20111222
  Serious: Yes (Hospitalization)
  Sender: FDA-Public Use
  Company Number: DE-NAPPMUNDI-DEU-2011-0007377

PATIENT
  Sex: Male
  Weight: 75 kg

DRUGS (4)
  1. MELPHALAN HYDROCHLORIDE [Suspect]
     Indication: MULTIPLE MYELOMA
     Dosage: 28 MG, DAILY
     Route: 042
     Dates: start: 20100101
  2. BORTEZOMIB [Suspect]
     Indication: MULTIPLE MYELOMA
     Dosage: 2.5 MG, DAILY
     Route: 042
     Dates: start: 20100101
  3. OXYCODONE HCL [Suspect]
     Indication: PAIN
     Dosage: 80 MG, DAILY
     Route: 048
     Dates: start: 20100101
  4. PREDNISOLONE [Suspect]
     Indication: MULTIPLE MYELOMA
     Dosage: 100 MG, DAILY
     Route: 048
     Dates: start: 20100101

REACTIONS (1)
  - DIVERTICULITIS [None]
